FAERS Safety Report 5334341-0 (Version None)
Quarter: 2007Q2

REPORT INFORMATION
  Report Type: 
  Country: None (occurrence: None)
  Receive Date: 20070525
  Receipt Date: 20060925
  Transmission Date: 20071010
  Serious: Yes (Hospitalization)
  Sender: FDA-Public Use
  Company Number: US-BRISTOL-MYERS SQUIBB COMPANY-13520390

PATIENT
  Sex: Female
  Weight: 108 kg

DRUGS (2)
  1. CYTOXAN [Suspect]
     Indication: NON-HODGKIN'S LYMPHOMA
  2. RITUXAN [Suspect]
     Indication: NON-HODGKIN'S LYMPHOMA

REACTIONS (1)
  - ANAPHYLACTIC REACTION [None]
